FAERS Safety Report 12843611 (Version 2)
Quarter: 2016Q4

REPORT INFORMATION
  Report Type: Report from Study
  Country: BE (occurrence: BE)
  Receive Date: 20161013
  Receipt Date: 20161129
  Transmission Date: 20170207
  Serious: Yes (Other)
  Sender: FDA-Public Use
  Company Number: BE-AMGEN-BELNI2016139040

PATIENT
  Age: 39 Year
  Sex: Male

DRUGS (9)
  1. CINACALCET HCL [Suspect]
     Active Substance: CINACALCET HYDROCHLORIDE
     Indication: PRODUCT USED FOR UNKNOWN INDICATION
     Dosage: 60 MG, QD
     Route: 048
     Dates: start: 20130128, end: 20160726
  2. ARANESP [Concomitant]
     Active Substance: DARBEPOETIN ALFA
     Dosage: 0.5 SYRINGES, 3 TIMES/WK
     Route: 058
  3. BISOPROLOL EG [Concomitant]
     Active Substance: BISOPROLOL
     Dosage: 5 MG, QD
     Route: 048
  4. MEDROL [Concomitant]
     Active Substance: METHYLPREDNISOLONE
     Dosage: 4 MG, QD
     Route: 048
  5. PHOSLO [Concomitant]
     Active Substance: CALCIUM ACETATE
     Dosage: 0.001 MG, QD
  6. NATRIUM BICARBONATE ORION [Concomitant]
     Dosage: 3 G, QD
     Route: 048
  7. PANTOMED [Concomitant]
     Active Substance: DEXPANTHENOL
     Dosage: 10 MG, QD
     Route: 048
  8. SIMVASTATINE EG [Concomitant]
     Dosage: 20 MG, QD
     Route: 048
  9. TRITACE [Concomitant]
     Active Substance: RAMIPRIL
     Dosage: 2.5 MG, QD
     Route: 048

REACTIONS (1)
  - End stage renal disease [Not Recovered/Not Resolved]

NARRATIVE: CASE EVENT DATE: 20160727
